FAERS Safety Report 8799518 (Version 1)
Quarter: 2012Q4

REPORT INFORMATION
  Report Type: 
  Country: US (occurrence: US)
  Receive Date: 20120919
  Receipt Date: 20120919
  Transmission Date: 20130627
  Serious: No
  Sender: FDA-Public Use
  Company Number: US-PFIZER INC-2012230420

PATIENT
  Age: 55 Year
  Sex: Female

DRUGS (2)
  1. NICOTROL INHALER [Suspect]
     Dosage: UNK
     Route: 055
     Dates: start: 20120319, end: 2012
  2. NICOTROL INHALER [Suspect]
     Dosage: UNK
     Dates: start: 201209, end: 201209

REACTIONS (1)
  - Drug ineffective [Unknown]
